FAERS Safety Report 8037968 (Version 2)
Quarter: 2012Q4

REPORT INFORMATION
  Report Type: 
  Country: US (occurrence: US)
  Receive Date: 20110716
  Receipt Date: 20121228
  Transmission Date: 20130627
  Serious: Yes (Hospitalization, Other)
  Sender: FDA-Public Use
  Company Number: US-ASTRAZENECA-2011SE20797

PATIENT
  Age: 84 Year
  Sex: Female
  Weight: 93.4 kg

DRUGS (14)
  1. CRESTOR [Suspect]
     Route: 048
  2. CRESTOR [Suspect]
     Route: 048
  3. CRESTOR [Suspect]
     Route: 048
  4. MORPHINE [Suspect]
     Route: 065
  5. PENICILLIN [Suspect]
     Route: 065
  6. TALWIN [Suspect]
     Route: 065
  7. PAXIL [Concomitant]
     Route: 048
  8. DELTASONE [Concomitant]
     Route: 048
  9. COZAAR [Concomitant]
     Route: 048
  10. LANTUS [Concomitant]
     Dosage: 100 UNITS/ML, 65 UNITS UNDER SKIN DAILY
  11. SYNTHROID [Concomitant]
     Dosage: EXCEPT SKIP SUNDAY
  12. SYNTHROID [Concomitant]
     Dosage: LEVOTHROID, EXCEPT SKIP SUNDAY
  13. ASPIRIN [Concomitant]
     Route: 048
  14. ALLEGRA [Concomitant]
     Route: 048

REACTIONS (20)
  - Accident [Unknown]
  - Rib fracture [Unknown]
  - Head injury [Unknown]
  - Renal disorder [Unknown]
  - Bronchitis [Unknown]
  - Calcinosis [Unknown]
  - Movement disorder [Unknown]
  - Diabetes mellitus inadequate control [Unknown]
  - Hypoacusis [Unknown]
  - Head discomfort [Unknown]
  - Kidney infection [Unknown]
  - Laryngitis [Unknown]
  - Pain [Unknown]
  - Malaise [Unknown]
  - Musculoskeletal discomfort [Unknown]
  - Myalgia [Unknown]
  - Arthralgia [Unknown]
  - Pain in extremity [Unknown]
  - Flatulence [Unknown]
  - Feeling abnormal [Unknown]
